FAERS Safety Report 9137127 (Version 1)
Quarter: 2013Q1

REPORT INFORMATION
  Report Type: Spontaneous
  Country: US (occurrence: US)
  Receive Date: 20130219
  Receipt Date: 20130219
  Transmission Date: 20140127
  Serious: No
  Sender: FDA-Public Use
  Company Number: US-BRISTOL-MYERS SQUIBB COMPANY-16804130

PATIENT
  Age: 48 Year
  Sex: Female
  Weight: 88.43 kg

DRUGS (2)
  1. ORENCIA FOR INJ [Suspect]
     Indication: RHEUMATOID ARTHRITIS
     Dosage: ONE MONTH LOADING INTERVAL; 2 WEEK LOADING DOSE PERIOD
     Route: 042
     Dates: start: 20120713
  2. METHOTREXATE [Concomitant]

REACTIONS (1)
  - Abnormal dreams [Recovering/Resolving]
